FAERS Safety Report 24250474 (Version 1)
Quarter: 2024Q3

REPORT INFORMATION
  Report Type: Spontaneous
  Country: CH (occurrence: CH)
  Receive Date: 20240826
  Receipt Date: 20240826
  Transmission Date: 20241016
  Serious: Yes (Hospitalization)
  Sender: TEVA
  Company Number: None

PATIENT
  Age: 77 Year
  Sex: Male
  Weight: 63.3 kg

DRUGS (22)
  1. AMOXICILLIN\CLAVULANIC ACID [Suspect]
     Active Substance: AMOXICILLIN\CLAVULANIC ACID
     Indication: Urinary tract infection
     Dosage: CO-AMOXICILLIN, MANUFACTURER AND DOSAGE UNKNOWN
     Route: 048
     Dates: start: 20240608, end: 20240615
  2. ATORVASTATIN [Suspect]
     Active Substance: ATORVASTATIN
     Indication: Dyslipidaemia
     Dosage: ATORVASTATIN MEPHA TEVA, 1-0-0-0
     Route: 048
     Dates: end: 20240701
  3. SERTRALINE HYDROCHLORIDE [Suspect]
     Active Substance: SERTRALINE HYDROCHLORIDE
     Indication: Depression
     Dosage: 1.5-0-0-0
     Route: 048
     Dates: start: 20240607, end: 20240701
  4. TORSEMIDE [Concomitant]
     Active Substance: TORSEMIDE
     Indication: Product used for unknown indication
     Dosage: 1-0-0-0
     Route: 048
  5. CALCIMAGON D3 UNO [Concomitant]
     Indication: Product used for unknown indication
     Dosage: 500/800 LEMON, 1-0-0-0
     Route: 048
  6. Novalgin [Concomitant]
     Indication: Product used for unknown indication
     Dosage: 0-0-0-1
     Route: 048
  7. FOLIC ACID [Concomitant]
     Active Substance: FOLIC ACID
     Indication: Product used for unknown indication
     Dosage: 1-0-0-0
     Route: 048
  8. ALLOPURINOL [Concomitant]
     Active Substance: ALLOPURINOL
     Indication: Product used for unknown indication
     Dosage: 1-0-0-0
     Route: 048
  9. CYANOCOBALAMIN [Concomitant]
     Active Substance: CYANOCOBALAMIN
     Indication: Product used for unknown indication
     Dosage: 1-0-0-0
     Route: 048
  10. ENTRESTO [Concomitant]
     Active Substance: SACUBITRIL\VALSARTAN
     Indication: Product used for unknown indication
     Dosage: 1-0-1-0
     Route: 048
  11. CHOLECALCIFEROL [Concomitant]
     Active Substance: CHOLECALCIFEROL
     Indication: Product used for unknown indication
     Dosage: 4000 IU/ML 1.5 ML-0-0-0 EVERY TUESDAY, THERAPY 30 ML,
     Route: 048
  12. PANTOZOL [Concomitant]
     Active Substance: PANTOPRAZOLE SODIUM
     Indication: Product used for unknown indication
     Dosage: 1-0-0-0
     Route: 048
  13. VALPROATE [Suspect]
     Active Substance: VALPROIC ACID
     Indication: Mood swings
     Dosage: MANUFACTURER AND DOSAGE UNKNOWN
     Route: 048
     Dates: start: 20240619, end: 20240627
  14. ASPIRIN [Concomitant]
     Active Substance: ASPIRIN
     Indication: Product used for unknown indication
     Dosage: 1-0-0-0
     Route: 048
  15. METOPROLOL SUCCINATE [Concomitant]
     Active Substance: METOPROLOL SUCCINATE
     Indication: Product used for unknown indication
     Dosage: 1-0-1-0
     Route: 048
  16. ELTROXIN LF [Concomitant]
     Indication: Product used for unknown indication
     Dosage: 0.5-0-0-0
     Route: 048
  17. ELTROXIN LF [Concomitant]
     Indication: Product used for unknown indication
     Dosage: 1-0-0-0
     Route: 048
  18. JARDIANCE [Concomitant]
     Active Substance: EMPAGLIFLOZIN
     Indication: Product used for unknown indication
     Dosage: 1-0-0-0
     Route: 048
  19. QUETIAPIN G L [Concomitant]
     Indication: Product used for unknown indication
     Dosage: 0-0-0-1
     Route: 048
  20. GLYCOPYRRONIUM\INDACATEROL [Concomitant]
     Active Substance: GLYCOPYRRONIUM\INDACATEROL
     Indication: Product used for unknown indication
     Dosage: 110 MCG/50MCG, 1-0-0-0
     Route: 055
  21. MAGNESIOCARD ORANGE [Concomitant]
     Indication: Product used for unknown indication
     Dosage: 1-0-0-0
     Route: 048
  22. ALDACTONE [Concomitant]
     Active Substance: SPIRONOLACTONE
     Indication: Product used for unknown indication
     Dosage: 0.25-0-0-0
     Route: 048

REACTIONS (2)
  - Jaundice [Not Recovered/Not Resolved]
  - Liver disorder [Not Recovered/Not Resolved]

NARRATIVE: CASE EVENT DATE: 20240626
